FAERS Safety Report 7770435-8 (Version None)
Quarter: 2011Q3

REPORT INFORMATION
  Report Type: 
  Country: None (occurrence: None)
  Receive Date: 20110922
  Receipt Date: 20110406
  Transmission Date: 20111222
  Serious: No
  Sender: FDA-Public Use
  Company Number: US-ASTRAZENECA-2011SE19967

PATIENT
  Age: 53 Year
  Sex: Female
  Weight: 88 kg

DRUGS (8)
  1. SEROQUEL XR [Suspect]
     Route: 048
     Dates: start: 20110201
  2. SEROQUEL XR [Suspect]
     Indication: DEPRESSION
     Route: 048
     Dates: end: 20100901
  3. POTCHLORIDE [Concomitant]
     Indication: BLOOD PRESSURE ABNORMAL
  4. SEROQUEL XR [Suspect]
     Indication: SLEEP DISORDER
     Route: 048
     Dates: end: 20100901
  5. ZOLOFT [Concomitant]
  6. LOSARTAN POTASSIUM [Concomitant]
  7. SEROQUEL XR [Suspect]
     Route: 048
     Dates: start: 20110201
  8. HYDROCHLOROTHIAZIDE [Concomitant]

REACTIONS (14)
  - WEIGHT INCREASED [None]
  - MUSCLE SPASMS [None]
  - IRRITABILITY [None]
  - HYPERHIDROSIS [None]
  - NAUSEA [None]
  - INCREASED APPETITE [None]
  - WRONG TECHNIQUE IN DRUG USAGE PROCESS [None]
  - SOMNOLENCE [None]
  - OFF LABEL USE [None]
  - WITHDRAWAL SYNDROME [None]
  - BLEPHAROSPASM [None]
  - DRUG DOSE OMISSION [None]
  - DEPRESSION [None]
  - DYSKINESIA [None]
